FAERS Safety Report 15550825 (Version 1)
Quarter: 2018Q4

REPORT INFORMATION
  Report Type: Spontaneous
  Country: AU (occurrence: AU)
  Receive Date: 20181025
  Receipt Date: 20181025
  Transmission Date: 20190205
  Serious: Yes (Other)
  Sender: FDA-Public Use
  Company Number: AU-LPDUSPRD-20181937

PATIENT
  Age: 27 Year
  Sex: Female

DRUGS (1)
  1. FERINJECT [Suspect]
     Active Substance: FERRIC CARBOXYMALTOSE
     Dosage: 1000 MG
     Route: 041
     Dates: start: 20180517, end: 20180517

REACTIONS (3)
  - Rash [Unknown]
  - Dermatitis allergic [Unknown]
  - Urticaria [Unknown]

NARRATIVE: CASE EVENT DATE: 20180517
